FAERS Safety Report 18458401 (Version 1)
Quarter: 2020Q4

REPORT INFORMATION
  Report Type: Spontaneous
  Country: US (occurrence: US)
  Receive Date: 20201103
  Receipt Date: 20201103
  Transmission Date: 20210114
  Serious: Yes (Hospitalization)
  Sender: FDA-Public Use
  Company Number: US-VERTEX PHARMACEUTICALS-2020-021278

PATIENT
  Sex: Male

DRUGS (2)
  1. CAYSTON [Concomitant]
     Active Substance: AZTREONAM
  2. SYMDEKO [Suspect]
     Active Substance: IVACAFTOR\TEZACAFTOR
     Indication: CYSTIC FIBROSIS
     Dosage: 100 MG TEZACAFTOR/ 150 MG IVACAFTOR AM; 150 MG IVACAFTOR PM
     Route: 048
     Dates: start: 20190222

REACTIONS (3)
  - Oxygen saturation decreased [Not Recovered/Not Resolved]
  - Abdominal pain [Unknown]
  - Respiratory symptom [Not Recovered/Not Resolved]

NARRATIVE: CASE EVENT DATE: 2020
